FAERS Safety Report 4543674-7 (Version None)
Quarter: 2004Q4

REPORT INFORMATION
  Report Type: 
  Country: None (occurrence: None)
  Receive Date: 20041229
  Receipt Date: 20041229
  Transmission Date: 20050328
  Serious: Yes (Other)
  Sender: FDA-Public Use
  Company Number: None

PATIENT
  Sex: Female

DRUGS (1)
  1. OMNIPAQUE 300 [Suspect]
     Indication: COMPUTERISED TOMOGRAM
     Dosage: 150 CC    ONE TIME   INTRAVENOU
     Route: 042
     Dates: start: 20041221, end: 20041221

REACTIONS (3)
  - CONTRAST MEDIA REACTION [None]
  - PRURITUS [None]
  - URTICARIA [None]
